FAERS Safety Report 4839011-0 (Version None)
Quarter: 2005Q4

REPORT INFORMATION
  Report Type: 
  Country: None (occurrence: None)
  Receive Date: 20051024
  Receipt Date: 20050802
  Transmission Date: 20060501
  Serious: Yes (Hospitalization)
  Sender: FDA-Public Use
  Company Number: 2005110339

PATIENT
  Sex: Female
  Weight: 47.1741 kg

DRUGS (1)
  1. RELPAX [Suspect]
     Indication: ILL-DEFINED DISORDER
     Dosage: (40 MG, ONE TIME)

REACTIONS (2)
  - INSOMNIA [None]
  - WHEEZING [None]
